FAERS Safety Report 9187962 (Version 3)
Quarter: 2013Q3

REPORT INFORMATION
  Report Type: Spontaneous
  Country: US (occurrence: US)
  Receive Date: 20130325
  Receipt Date: 20130912
  Transmission Date: 20140515
  Serious: Yes (Hospitalization)
  Sender: FDA-Public Use
  Company Number: US-PFIZER INC-2013093767

PATIENT
  Age: 52 Year
  Sex: Female
  Weight: 81.63 kg

DRUGS (4)
  1. LIPITOR [Suspect]
     Indication: BLOOD CHOLESTEROL INCREASED
     Dosage: UNK, 1X/DAY
     Route: 048
     Dates: end: 201301
  2. NEURONTIN [Suspect]
     Indication: NEUROPATHY PERIPHERAL
     Dosage: 400 MG, 4X/DAY
     Route: 048
     Dates: end: 201301
  3. ZOLOFT [Suspect]
     Indication: DEPRESSION
     Dosage: 50 MG, 1X/DAY
     Route: 048
     Dates: end: 201301
  4. BETASERON [Concomitant]
     Indication: MULTIPLE SCLEROSIS
     Dosage: UNK

REACTIONS (5)
  - Cellulitis [Unknown]
  - Fall [Unknown]
  - Accident [Unknown]
  - Muscular weakness [Unknown]
  - Weight fluctuation [Unknown]
